FAERS Safety Report 22084592 (Version 1)
Quarter: 2023Q1

REPORT INFORMATION
  Report Type: Spontaneous
  Country: CA (occurrence: None)
  Receive Date: 20230310
  Receipt Date: 20230310
  Transmission Date: 20230417
  Serious: Yes (Other)
  Sender: FDA-Public Use
  Company Number: CA-PFIZER INC-202300093980

PATIENT
  Age: 51 Year
  Sex: Female

DRUGS (11)
  1. METHOTREXATE [Suspect]
     Active Substance: METHOTREXATE
     Indication: Granulomatosis with polyangiitis
     Route: 065
  2. IMURAN [Concomitant]
     Active Substance: AZATHIOPRINE
     Indication: Granulomatosis with polyangiitis
     Route: 048
  3. IMURAN [Concomitant]
     Active Substance: AZATHIOPRINE
     Indication: Tracheal stenosis
  4. MELOXICAM [Concomitant]
     Active Substance: MELOXICAM
     Indication: Granulomatosis with polyangiitis
     Route: 065
  5. MELOXICAM [Concomitant]
     Active Substance: MELOXICAM
     Indication: Tracheal stenosis
  6. PANTOPRAZOLE MAGNESIUM [Concomitant]
     Active Substance: PANTOPRAZOLE MAGNESIUM
     Indication: Granulomatosis with polyangiitis
     Route: 065
  7. PANTOPRAZOLE MAGNESIUM [Concomitant]
     Active Substance: PANTOPRAZOLE MAGNESIUM
     Indication: Tracheal stenosis
  8. AMITRIPTYLINE [Concomitant]
     Active Substance: AMITRIPTYLINE
     Indication: Granulomatosis with polyangiitis
     Route: 065
  9. AMITRIPTYLINE [Concomitant]
     Active Substance: AMITRIPTYLINE
     Indication: Tracheal stenosis
  10. AZITHROMYCIN [Concomitant]
     Active Substance: AZITHROMYCIN
     Indication: Granulomatosis with polyangiitis
     Route: 065
  11. AZITHROMYCIN [Concomitant]
     Active Substance: AZITHROMYCIN
     Indication: Tracheal stenosis

REACTIONS (2)
  - Vertigo [Unknown]
  - Product use in unapproved indication [Unknown]
